FAERS Safety Report 16360473 (Version 7)
Quarter: 2019Q4

REPORT INFORMATION
  Report Type: Spontaneous
  Country: US (occurrence: US)
  Receive Date: 20190528
  Receipt Date: 20191016
  Transmission Date: 20200122
  Serious: Yes (Other)
  Sender: FDA-Public Use
  Company Number: PHEH2019US022703

PATIENT
  Sex: Female
  Weight: 58.96 kg

DRUGS (5)
  1. ONDANSETRON DR REDDY [Suspect]
     Active Substance: ONDANSETRON
     Indication: HYPEREMESIS GRAVIDARUM
     Dosage: 8 MG, PRN
     Route: 048
     Dates: start: 20130806, end: 20131231
  2. ONDANSETRON TEVA [Suspect]
     Active Substance: ONDANSETRON
     Indication: HYPEREMESIS GRAVIDARUM
     Dosage: 04 MG, PRN
     Route: 048
     Dates: start: 20130730, end: 20130930
  3. ZOFRAN [Suspect]
     Active Substance: ONDANSETRON HYDROCHLORIDE
     Indication: MORNING SICKNESS
     Dosage: 08 MG, BID
     Route: 048
     Dates: start: 20130804
  4. ONDANSETRON TEVA [Suspect]
     Active Substance: ONDANSETRON
     Indication: MORNING SICKNESS
     Dosage: 04 MG, QD
     Route: 042
     Dates: start: 20130727, end: 20130727
  5. ZOFRAN [Suspect]
     Active Substance: ONDANSETRON HYDROCHLORIDE
     Indication: HYPEREMESIS GRAVIDARUM
     Dosage: 08 MG, Q8H
     Route: 042
     Dates: start: 20130723, end: 20131231

REACTIONS (11)
  - Maternal exposure during pregnancy [Unknown]
  - Headache [Unknown]
  - Product use in unapproved indication [Unknown]
  - Gestational hypertension [Unknown]
  - Pain [Unknown]
  - Anhedonia [Unknown]
  - Urinary tract infection [Unknown]
  - Injury [Unknown]
  - Anxiety [Unknown]
  - Emotional distress [Unknown]
  - Normal newborn [Unknown]
